FAERS Safety Report 19925721 (Version 1)
Quarter: 2021Q4

REPORT INFORMATION
  Report Type: Spontaneous
  Country: GB (occurrence: GB)
  Receive Date: 20211007
  Receipt Date: 20211007
  Transmission Date: 20220303
  Serious: Yes (Other)
  Sender: FDA-Public Use
  Company Number: GB-MHRA-ADR 25984354

PATIENT
  Age: 65 Year

DRUGS (1)
  1. OLANZAPINE [Suspect]
     Active Substance: OLANZAPINE
     Indication: Product used for unknown indication
     Dosage: 2.5 UNK
     Route: 065

REACTIONS (4)
  - Extrasystoles [Unknown]
  - Heart valve incompetence [Unknown]
  - Nausea [Not Recovered/Not Resolved]
  - Palpitations [Unknown]
